FAERS Safety Report 13691374 (Version 1)
Quarter: 2017Q2

REPORT INFORMATION
  Report Type: Spontaneous
  Country: US (occurrence: US)
  Receive Date: 20170626
  Receipt Date: 20170626
  Transmission Date: 20170830
  Serious: No
  Sender: FDA-Public Use
  Company Number: US-ROCHE-1322577

PATIENT
  Age: 74 Year
  Sex: Male

DRUGS (1)
  1. TENECTEPLASE [Suspect]
     Active Substance: TENECTEPLASE
     Indication: ARTERIAL THROMBOSIS
     Dosage: 1 IN 1 ONCE
     Route: 042

REACTIONS (4)
  - Drug dispensing error [Unknown]
  - Off label use [Unknown]
  - Incorrect dose administered [Unknown]
  - Medication error [Unknown]
